FAERS Safety Report 13571840 (Version 1)
Quarter: 2017Q2

REPORT INFORMATION
  Report Type: Spontaneous
  Country: US (occurrence: US)
  Receive Date: 20170522
  Receipt Date: 20170522
  Transmission Date: 20170830
  Serious: Yes (Hospitalization, Other)
  Sender: FDA-Public Use
  Company Number: None

PATIENT
  Age: 76 Year
  Sex: Male
  Weight: 115.62 kg

DRUGS (4)
  1. VANCOMYCIN [Suspect]
     Active Substance: VANCOMYCIN
     Indication: DIABETIC FOOT
     Dosage: FREQUENCY - OTHER
     Route: 042
     Dates: start: 20170117, end: 20170204
  2. VANCOMYCIN [Suspect]
     Active Substance: VANCOMYCIN
     Indication: SKIN INFECTION
     Dosage: FREQUENCY - OTHER
     Route: 042
     Dates: start: 20170117, end: 20170204
  3. VANCOMYCIN [Suspect]
     Active Substance: VANCOMYCIN
     Indication: SOFT TISSUE INFECTION
     Dosage: FREQUENCY - OTHER
     Route: 042
     Dates: start: 20170117, end: 20170204
  4. VANCOMYCIN [Suspect]
     Active Substance: VANCOMYCIN
     Indication: EVIDENCE BASED TREATMENT
     Dosage: FREQUENCY - OTHER
     Route: 042
     Dates: start: 20170117, end: 20170204

REACTIONS (2)
  - Red man syndrome [None]
  - Rash [None]

NARRATIVE: CASE EVENT DATE: 20170205
